FAERS Safety Report 8497620-4 (Version None)
Quarter: 2012Q3

REPORT INFORMATION
  Report Type: 
  Country: None (occurrence: None)
  Receive Date: 20120709
  Receipt Date: 20120611
  Transmission Date: 20120928
  Serious: No
  Sender: FDA-Public Use
  Company Number: US-AMGEN-USASP2012010782

PATIENT
  Age: 44 Year
  Sex: Male
  Weight: 78.912 kg

DRUGS (2)
  1. ENBREL [Suspect]
     Indication: PSORIATIC ARTHROPATHY
     Dosage: 50 MG, QWK
     Route: 058
     Dates: start: 20120203
  2. ENBREL [Suspect]
     Indication: PSORIASIS

REACTIONS (7)
  - INFLUENZA LIKE ILLNESS [None]
  - UPPER-AIRWAY COUGH SYNDROME [None]
  - PRODUCTIVE COUGH [None]
  - COUGH [None]
  - RESPIRATORY TRACT CONGESTION [None]
  - RHINITIS [None]
  - DIZZINESS [None]
